FAERS Safety Report 7745946-1 (Version None)
Quarter: 2011Q3

REPORT INFORMATION
  Report Type: 
  Country: None (occurrence: None)
  Receive Date: 20110825
  Receipt Date: 20110701
  Transmission Date: 20111222
  Serious: No
  Sender: FDA-Public Use
  Company Number: 331920

PATIENT
  Age: 46 Year
  Sex: Male
  Weight: 89.8 kg

DRUGS (1)
  1. VICTOZA [Suspect]
     Dosage: SUBCUTANEOUS
     Route: 058

REACTIONS (3)
  - WEIGHT DECREASED [None]
  - INJECTION SITE WARMTH [None]
  - INJECTION SITE NODULE [None]
